FAERS Safety Report 8096160-4 (Version None)
Quarter: 2012Q1

REPORT INFORMATION
  Report Type: 
  Country: None (occurrence: None)
  Receive Date: 20120131
  Receipt Date: 20120124
  Transmission Date: 20120608
  Serious: Yes (Death, Hospitalization)
  Sender: FDA-Public Use
  Company Number: PL-GLAXOSMITHKLINE-B0777391A

PATIENT
  Sex: Male

DRUGS (1)
  1. MALARONE [Suspect]
     Indication: PROPHYLAXIS
     Route: 065

REACTIONS (4)
  - RESPIRATORY FAILURE [None]
  - CIRCULATORY COLLAPSE [None]
  - PLASMODIUM FALCIPARUM INFECTION [None]
  - DRUG INEFFECTIVE [None]
